APPROVED DRUG PRODUCT: LEVOLEUCOVORIN CALCIUM
Active Ingredient: LEVOLEUCOVORIN CALCIUM
Strength: EQ 175MG BASE/17.5ML (EQ 10MG BASE/ML) 
Dosage Form/Route: SOLUTION;INTRAVENOUS
Application: A207548 | Product #001 | TE Code: AP
Applicant: AMNEAL EU LTD
Approved: Sep 8, 2017 | RLD: No | RS: No | Type: RX